FAERS Safety Report 8353613-9 (Version None)
Quarter: 2012Q2

REPORT INFORMATION
  Report Type: 
  Country: None (occurrence: None)
  Receive Date: 20120511
  Receipt Date: 20110803
  Transmission Date: 20120825
  Serious: No
  Sender: FDA-Public Use
  Company Number: US-GLAXOSMITHKLINE-A0940161A

PATIENT
  Age: 47 Year
  Sex: Female

DRUGS (11)
  1. HUMIRA [Concomitant]
  2. DECADRON [Concomitant]
  3. CLOBETASOL PROPIONATE [Concomitant]
  4. TYKERB [Suspect]
     Indication: BREAST CANCER
     Dosage: 1000MG PER DAY
     Route: 048
     Dates: start: 20110713, end: 20110823
  5. VITAMIN [Concomitant]
  6. CINACALCET HYDROCHLORIDE [Concomitant]
  7. ZEMPLAR [Concomitant]
  8. DEXAMETHASONE [Concomitant]
  9. LANTHANUM CARBONATE [Concomitant]
  10. FISH OIL [Concomitant]
  11. STOOL SOFTENER [Concomitant]

REACTIONS (4)
  - HYPERTENSION [None]
  - COUGH [None]
  - VOMITING [None]
  - NAUSEA [None]
